FAERS Safety Report 4567966-0 (Version None)
Quarter: 2005Q1

REPORT INFORMATION
  Report Type: 
  Country: None (occurrence: None)
  Receive Date: 20050128
  Receipt Date: 20030630
  Transmission Date: 20050727
  Serious: Yes (Hospitalization)
  Sender: FDA-Public Use
  Company Number: GXKR2003TR00577

PATIENT
  Age: 23 Year
  Sex: Male

DRUGS (1)
  1. AMPICILLIN [Suspect]
     Indication: UPPER RESPIRATORY TRACT INFECTION
     Dosage: 500 MG, Q6H, ORAL
     Route: 048

REACTIONS (1)
  - HEPATITIS CHOLESTATIC [None]
